FAERS Safety Report 22588849 (Version 1)
Quarter: 2023Q2

REPORT INFORMATION
  Report Type: Spontaneous
  Country: US (occurrence: US)
  Receive Date: 20230612
  Receipt Date: 20230612
  Transmission Date: 20230722
  Serious: No
  Sender: FDA-Public Use
  Company Number: US-drreddys-SPO/USA/23/0165183

PATIENT
  Age: 49 Year
  Sex: Female

DRUGS (5)
  1. LETROZOLE [Suspect]
     Active Substance: LETROZOLE
     Indication: Peritoneal sarcoma
     Dosage: LOW DOSE
     Dates: start: 2022
  2. LETROZOLE [Suspect]
     Active Substance: LETROZOLE
     Indication: Intestinal metastasis
  3. LETROZOLE [Suspect]
     Active Substance: LETROZOLE
     Indication: Peritoneal carcinoma metastatic
  4. TRULICITY [Concomitant]
     Active Substance: DULAGLUTIDE
     Indication: Diabetes mellitus inadequate control
  5. JARDIANCE [Concomitant]
     Active Substance: EMPAGLIFLOZIN
     Indication: Diabetes mellitus inadequate control

REACTIONS (2)
  - Menopausal symptoms [Unknown]
  - Product use in unapproved indication [Unknown]

NARRATIVE: CASE EVENT DATE: 20220101
